FAERS Safety Report 9436071 (Version 2)
Quarter: 2023Q2

REPORT INFORMATION
  Report Type: Spontaneous
  Country: DE (occurrence: DE)
  Receive Date: 20130801
  Receipt Date: 20230421
  Transmission Date: 20230722
  Serious: Yes (Other)
  Sender: FDA-Public Use
  Company Number: PHHY2013DE080200

PATIENT
  Age: 73 Year
  Sex: Male

DRUGS (2)
  1. AMITRIPTYLINE [Interacting]
     Active Substance: AMITRIPTYLINE
     Indication: Depression
     Dosage: 150 MG, QD
     Route: 065
  2. VALPROATE SODIUM [Interacting]
     Active Substance: VALPROATE SODIUM
     Indication: Depression
     Dosage: 1200 MG, QD
     Route: 065

REACTIONS (13)
  - Dysarthria [Unknown]
  - Muscle rigidity [Unknown]
  - Disorientation [Unknown]
  - Agitation [Unknown]
  - Delirium [Unknown]
  - Ataxia [Unknown]
  - Drug interaction [Unknown]
  - Somnolence [Unknown]
  - Constipation [Unknown]
  - Tremor [Unknown]
  - Dizziness [Unknown]
  - Hyperhidrosis [Unknown]
  - Antidepressant drug level increased [Recovering/Resolving]
